FAERS Safety Report 24017530 (Version 3)
Quarter: 2024Q3

REPORT INFORMATION
  Report Type: Spontaneous
  Country: US (occurrence: US)
  Receive Date: 20240627
  Receipt Date: 20240729
  Transmission Date: 20241017
  Serious: Yes (Life-Threatening)
  Sender: LEO PHARM
  Company Number: US-LEO Pharma-371511

PATIENT
  Age: 82 Year
  Sex: Male

DRUGS (6)
  1. ADBRY [Suspect]
     Active Substance: TRALOKINUMAB-LDRM
     Indication: Dermatitis atopic
     Route: 058
  2. ADBRY [Suspect]
     Active Substance: TRALOKINUMAB-LDRM
     Indication: Dermatitis atopic
     Dosage: 4 INJECTIONS FOR THE LOADING DOSE
     Route: 058
     Dates: start: 20240222
  3. ROSUVASTATIN [Concomitant]
     Active Substance: ROSUVASTATIN\ROSUVASTATIN CALCIUM
     Indication: Product used for unknown indication
  4. LISINOPRIL [Concomitant]
     Active Substance: LISINOPRIL
     Indication: Product used for unknown indication
  5. OXYBUTYNIN CHLORIDE [Concomitant]
     Active Substance: OXYBUTYNIN CHLORIDE
     Indication: Product used for unknown indication
  6. METOPROLOL [Concomitant]
     Active Substance: METOPROLOL
     Indication: Product used for unknown indication

REACTIONS (4)
  - Hypertensive crisis [Recovered/Resolved]
  - Dizziness [Not Recovered/Not Resolved]
  - Hyperhidrosis [Not Recovered/Not Resolved]
  - Communication disorder [Recovered/Resolved]

NARRATIVE: CASE EVENT DATE: 20240619
